FAERS Safety Report 4998074-2 (Version None)
Quarter: 2006Q2

REPORT INFORMATION
  Report Type: 
  Country: None (occurrence: None)
  Receive Date: 20060510
  Receipt Date: 20060119
  Transmission Date: 20061013
  Serious: Yes (Hospitalization)
  Sender: FDA-Public Use
  Company Number: US-MERCK-0601USA02591

PATIENT
  Age: 55 Year
  Sex: Male
  Weight: 92 kg

DRUGS (16)
  1. VIOXX [Suspect]
     Route: 048
     Dates: start: 20040412, end: 20040930
  2. CELEBREX [Concomitant]
     Indication: PAIN
     Route: 048
     Dates: start: 20020423, end: 20040309
  3. BEXTRA [Concomitant]
     Indication: PAIN
     Route: 048
     Dates: start: 20041011, end: 20041111
  4. CEFUROXIME [Concomitant]
     Indication: BACTERIAL INFECTION
     Route: 048
     Dates: start: 20040121
  5. CRANTEX LA [Concomitant]
     Indication: NASAL DECONGESTION THERAPY
     Route: 048
     Dates: start: 20040121
  6. EFFEXOR [Concomitant]
     Indication: DEPRESSION
     Route: 048
     Dates: start: 20040121
  7. FUROSEMIDE [Concomitant]
     Indication: HYPERTENSION
     Route: 048
     Dates: start: 20041116
  8. FUROSEMIDE [Concomitant]
     Indication: OEDEMA
     Route: 048
     Dates: start: 20041116
  9. HYDROCODONE BITARTRATE + ACETAMINOPHEN [Concomitant]
     Indication: PAIN
     Route: 048
     Dates: start: 20040623, end: 20040723
  10. LAMISIL [Concomitant]
     Indication: FUNGAL INFECTION
     Route: 048
     Dates: start: 20030702
  11. LISINOPRIL-BC [Concomitant]
     Route: 048
     Dates: start: 20041113, end: 20050211
  12. LOPRESSOR [Concomitant]
     Route: 065
     Dates: start: 20021118
  13. METOPROLOL-BC [Concomitant]
     Route: 065
     Dates: start: 20030120, end: 20050201
  14. OMEPRASEC (OMEPRAZOLE) [Concomitant]
     Indication: HYPERCHLORHYDRIA
     Route: 065
     Dates: start: 20041109
  15. TEQUIN [Concomitant]
     Indication: BACTERIAL INFECTION
     Route: 065
     Dates: start: 20041001
  16. TOPROL-XL [Concomitant]
     Route: 065
     Dates: start: 20020925, end: 20040718

REACTIONS (8)
  - ABDOMINAL HERNIA [None]
  - ANXIETY [None]
  - HYPERCHLORHYDRIA [None]
  - MYOCARDIAL INFARCTION [None]
  - OBESITY [None]
  - PAIN [None]
  - SLEEP APNOEA SYNDROME [None]
  - THORACOPLASTY [None]
